FAERS Safety Report 12531342 (Version 4)
Quarter: 2016Q4

REPORT INFORMATION
  Report Type: Report from Study
  Country: IT (occurrence: IT)
  Receive Date: 20160706
  Receipt Date: 20161020
  Transmission Date: 20170207
  Serious: Yes (Other)
  Sender: FDA-Public Use
  Company Number: PHHY2015IT135157

PATIENT
  Age: 74 Year
  Sex: Female

DRUGS (1)
  1. TASIGNA [Suspect]
     Active Substance: NILOTINIB
     Indication: CHRONIC MYELOID LEUKAEMIA
     Dosage: UNK
     Route: 048

REACTIONS (17)
  - Oral lichen planus [Unknown]
  - Corneal lesion [Unknown]
  - Gastrointestinal disorder [Unknown]
  - Sciatica [Unknown]
  - Pruritus [Unknown]
  - Oedema peripheral [Unknown]
  - Constipation [Unknown]
  - Abdominal pain upper [Unknown]
  - Hyperbilirubinaemia [Unknown]
  - Nausea [Unknown]
  - Dry skin [Unknown]
  - Alopecia [Unknown]
  - Asthenia [Unknown]
  - Lichen planus [Unknown]
  - Diarrhoea [Unknown]
  - Abdominal pain [Unknown]
  - Erythema [Unknown]

NARRATIVE: CASE EVENT DATE: 2013
